FAERS Safety Report 7812774-8 (Version None)
Quarter: 2011Q4

REPORT INFORMATION
  Report Type: 
  Country: None (occurrence: None)
  Receive Date: 20111011
  Receipt Date: 20110930
  Transmission Date: 20120403
  Serious: Yes (Other)
  Sender: FDA-Public Use
  Company Number: JP-2011-10742

PATIENT
  Age: 73 Year
  Sex: Female
  Weight: 52.4 kg

DRUGS (20)
  1. DIART (AZOSEMIDE) TABLET [Concomitant]
  2. PREDNISOLONE (PREDNISOLONE SODIUM PHOSPHATE) TABLET [Concomitant]
  3. MEXITIL [Concomitant]
  4. LANIRAPID (METILDIGOXIN) TABLET [Concomitant]
  5. REVATIO (SILDENAFIL CITRATE) TABLET [Concomitant]
  6. ACARDI (PIMOBENDAN) CAPSULE [Concomitant]
  7. ZANTAC (RANITIDINE HYDROCHLORIDE) TABLET [Concomitant]
  8. CETAPRIL (ALACEPRIL) TABLET [Concomitant]
  9. HACHIMIJIO-GAN (HERBAL EXTRACT NOS) GRANULES [Concomitant]
  10. KALGUT (DENOPAMINE) TABLET [Concomitant]
  11. AMARYL [Concomitant]
  12. LASIX [Concomitant]
  13. SAMSCA [Suspect]
     Indication: CARDIAC FAILURE CHRONIC
     Dosage: 15 MG MILLIGRAM(S), QD, ORAL, 7.5 MG MILLIGRAM(S), QD, ORA
     Route: 046
     Dates: start: 20110429, end: 20110430
  14. SAMSCA [Suspect]
     Indication: CARDIAC FAILURE CHRONIC
     Dosage: 15 MG MILLIGRAM(S), QD, ORAL, 7.5 MG MILLIGRAM(S), QD, ORA
     Route: 046
     Dates: start: 20110428, end: 20110428
  15. ALFAROL (ALFACALCIDOL) CAPSULE [Concomitant]
  16. FERO-GRADUMET (FERROUS SULFATE) TABLET [Concomitant]
  17. WARFARIN (WARFARIN SODIUM) TABLET [Concomitant]
  18. ALLOPURINOL [Concomitant]
  19. ALDACTONE [Concomitant]
  20. FOSAMAC (ALENDRONATE SODIUM) TABLET [Concomitant]

REACTIONS (8)
  - ALANINE AMINOTRANSFERASE INCREASED [None]
  - CONDITION AGGRAVATED [None]
  - BLOOD POTASSIUM DECREASED [None]
  - BLOOD SODIUM INCREASED [None]
  - BLOOD BILIRUBIN INCREASED [None]
  - CARDIAC FAILURE [None]
  - ASPARTATE AMINOTRANSFERASE INCREASED [None]
  - HEPATIC FUNCTION ABNORMAL [None]
